FAERS Safety Report 7155208-1 (Version None)
Quarter: 2010Q4

REPORT INFORMATION
  Report Type: 
  Country: None (occurrence: None)
  Receive Date: 20101214
  Receipt Date: 20101025
  Transmission Date: 20110411
  Serious: No
  Sender: FDA-Public Use
  Company Number: US-AMGEN-KDL213026

PATIENT

DRUGS (2)
  1. ENBREL [Suspect]
     Indication: RHEUMATOID ARTHRITIS
     Dosage: 50 MG, QWK
     Route: 058
     Dates: start: 20040805, end: 20090926
  2. METHOTREXATE [Concomitant]
     Dosage: 25 MG, UNK
     Dates: start: 20030101

REACTIONS (8)
  - BLOOD URINE PRESENT [None]
  - ENDOMETRIAL HYPERTROPHY [None]
  - FATIGUE [None]
  - INJECTION SITE PAIN [None]
  - ONYCHOMYCOSIS [None]
  - RHEUMATOID ARTHRITIS [None]
  - UTERINE POLYP [None]
  - VULVOVAGINAL MYCOTIC INFECTION [None]
